FAERS Safety Report 6914574-X (Version None)
Quarter: 2010Q3

REPORT INFORMATION
  Report Type: 
  Country: None (occurrence: None)
  Receive Date: 20100804
  Receipt Date: 20100726
  Transmission Date: 20110219
  Serious: Yes (Hospitalization)
  Sender: FDA-Public Use
  Company Number: 2010US003007

PATIENT
  Age: 30 Year
  Sex: Female
  Weight: 59 kg

DRUGS (16)
  1. PROGRAF [Suspect]
     Indication: HEART AND LUNG TRANSPLANT
     Dosage: 2.5 MG, BID, ORAL
     Route: 048
     Dates: start: 20100105
  2. REGLAN [Concomitant]
  3. MULTIVITAMIN [Concomitant]
  4. MAGNESIUM OXIDE (MAGNESIUM OXIDE) [Concomitant]
  5. OYSTER SHELL CALCIUM (CALCIUM) [Concomitant]
  6. ALBUTEROL [Concomitant]
  7. MUCOMYST [Concomitant]
  8. CELLCEPT (MYCOPHENOLATE MOFETFIL) [Concomitant]
  9. PREDNISONE [Concomitant]
  10. VALCYTE [Concomitant]
  11. VFEND [Concomitant]
  12. BACTRIM [Concomitant]
  13. NEXIUM IV [Concomitant]
  14. ALENDRONAT (ALENDRONATE SODIUM) [Concomitant]
  15. PRAVACHOL [Concomitant]
  16. FISH OIL (FISH OIL) [Concomitant]

REACTIONS (4)
  - ANXIETY [None]
  - DEPRESSION [None]
  - INSOMNIA [None]
  - SUICIDAL IDEATION [None]
